FAERS Safety Report 6382854-5 (Version None)
Quarter: 2009Q3

REPORT INFORMATION
  Report Type: 
  Country: None (occurrence: None)
  Receive Date: 20090928
  Receipt Date: 20090928
  Transmission Date: 20100115
  Serious: Yes (Other)
  Sender: FDA-Public Use
  Company Number: None

PATIENT
  Age: 59 Year
  Sex: Female
  Weight: 97.5234 kg

DRUGS (1)
  1. CHANTIX [Suspect]
     Indication: SMOKING CESSATION THERAPY
     Dosage: 1MG TWICE A DAY PO
     Route: 048
     Dates: start: 20081027, end: 20090214

REACTIONS (3)
  - ANXIETY [None]
  - CHEST PAIN [None]
  - INSOMNIA [None]
